FAERS Safety Report 13467146 (Version 1)
Quarter: 2017Q2

REPORT INFORMATION
  Report Type: Spontaneous
  Country: BE (occurrence: BE)
  Receive Date: 20170421
  Receipt Date: 20170421
  Transmission Date: 20170830
  Serious: Yes (Death, Life-Threatening)
  Sender: FDA-Public Use
  Company Number: BE-VALIDUS PHARMACEUTICALS LLC-BE-2017VAL000613

PATIENT
  Age: 33 Year
  Sex: Female

DRUGS (7)
  1. IBUPROFEN. [Suspect]
     Active Substance: IBUPROFEN
     Indication: PRODUCT USED FOR UNKNOWN INDICATION
     Dosage: 8 G, ONCE
     Route: 065
  2. PROPOFOL. [Suspect]
     Active Substance: PROPOFOL
     Indication: SEDATION
     Dosage: UNK
  3. DICLOFENAC [Suspect]
     Active Substance: DICLOFENAC
     Indication: PRODUCT USED FOR UNKNOWN INDICATION
     Dosage: 1 G, ONCE
     Route: 065
  4. COLCHICINE. [Suspect]
     Active Substance: COLCHICINE
     Indication: PRODUCT USED FOR UNKNOWN INDICATION
     Dosage: 20 MG, ONCE
     Route: 048
  5. PROPOFOL. [Suspect]
     Active Substance: PROPOFOL
     Indication: MECHANICAL VENTILATION
  6. FUROSEMIDE. [Suspect]
     Active Substance: FUROSEMIDE
     Indication: PRODUCT USED FOR UNKNOWN INDICATION
     Dosage: 400 MG, ONCE
     Route: 065
  7. ATORVASTATIN [Suspect]
     Active Substance: ATORVASTATIN
     Indication: PRODUCT USED FOR UNKNOWN INDICATION
     Dosage: 100 MG, ONCE
     Route: 048

REACTIONS (21)
  - Ammonia increased [Fatal]
  - Coma scale abnormal [Fatal]
  - Propofol infusion syndrome [Fatal]
  - Muscle injury [Fatal]
  - Diarrhoea [Fatal]
  - Hypotension [Fatal]
  - Hypoxia [Fatal]
  - Hepatic failure [Fatal]
  - Unresponsive to stimuli [Fatal]
  - Shock haemorrhagic [Fatal]
  - Acute lung injury [Fatal]
  - Peritoneal haemorrhage [Fatal]
  - Haemorrhage [Fatal]
  - Enterocolitis [Fatal]
  - Drug interaction [Fatal]
  - Seizure [Fatal]
  - Overdose [Fatal]
  - Multiple organ dysfunction syndrome [Fatal]
  - Rhabdomyolysis [Fatal]
  - Ileus [Fatal]
  - Hypertriglyceridaemia [Fatal]
